APPROVED DRUG PRODUCT: DOXYCYCLINE HYCLATE
Active Ingredient: DOXYCYCLINE HYCLATE
Strength: EQ 75MG BASE
Dosage Form/Route: TABLET;ORAL
Application: A209372 | Product #001
Applicant: AMNEAL PHARMACEUTICALS CO GMBH
Approved: Oct 6, 2017 | RLD: No | RS: No | Type: DISCN